FAERS Safety Report 5746376-4 (Version None)
Quarter: 2008Q2

REPORT INFORMATION
  Report Type: 
  Country: None (occurrence: None)
  Receive Date: 20080522
  Receipt Date: 20080521
  Transmission Date: 20081010
  Serious: Yes (Hospitalization)
  Sender: FDA-Public Use
  Company Number: A0728985A

PATIENT
  Age: 62 Year
  Sex: Male

DRUGS (4)
  1. ALLI [Suspect]
     Indication: WEIGHT LOSS DIET
     Route: 048
     Dates: start: 20080201, end: 20080401
  2. LIPITOR [Concomitant]
  3. UROXATRAL [Concomitant]
  4. ESCITALOPRAM [Concomitant]

REACTIONS (5)
  - ABDOMINAL PAIN LOWER [None]
  - APPENDICITIS PERFORATED [None]
  - BODY TEMPERATURE INCREASED [None]
  - DIZZINESS [None]
  - EATING DISORDER [None]
